FAERS Safety Report 7234952-1 (Version None)
Quarter: 2011Q1

REPORT INFORMATION
  Report Type: 
  Country: None (occurrence: None)
  Receive Date: 20110120
  Receipt Date: 20110112
  Transmission Date: 20110831
  Serious: Yes (Death)
  Sender: FDA-Public Use
  Company Number: FI-ASTELLAS-2010EU006914

PATIENT
  Sex: Female

DRUGS (8)
  1. ATRODUAL [Concomitant]
     Indication: ASTHMA
     Dosage: 2.5 /ML, QID
     Route: 055
  2. BISOPROLOL [Concomitant]
     Indication: HYPERTONIA
     Dosage: 2.5 MG, BID
     Route: 048
  3. NOVO RAPID [Concomitant]
     Indication: DIABETES MELLITUS
     Dosage: UNK
     Route: 042
     Dates: start: 20101129
  4. FURESIS [Concomitant]
     Indication: DIURETIC THERAPY
     Dosage: 80 MG, BID
     Route: 048
     Dates: start: 20101207
  5. KLEXANE [Concomitant]
     Indication: THROMBOSIS PROPHYLAXIS
     Dosage: 40 MG, UID/QD
     Route: 058
     Dates: start: 20101129
  6. OMEPRAZOLE [Concomitant]
     Indication: PROPHYLAXIS
     Dosage: 40 MG, UID/QD
     Route: 048
     Dates: start: 20101202
  7. BLINDED MICAFUNGIN INJECTION [Suspect]
     Indication: ABDOMINAL INFECTION
     Dosage: 3 DF, UID/QD
     Route: 042
     Dates: start: 20101203, end: 20101205
  8. MEROPENEM [Concomitant]
     Indication: INFECTION
     Dosage: 1 G, TID
     Route: 042
     Dates: start: 20101208

REACTIONS (2)
  - RESPIRATORY FAILURE [None]
  - PNEUMONIA [None]
